FAERS Safety Report 14159656 (Version 1)
Quarter: 2017Q4

REPORT INFORMATION
  Report Type: Spontaneous
  Country: US (occurrence: US)
  Receive Date: 20171106
  Receipt Date: 20171106
  Transmission Date: 20180321
  Serious: No
  Sender: FDA-Public Use
  Company Number: US-PFIZER INC-2016586995

PATIENT
  Age: 76 Year
  Sex: Female
  Weight: 90.72 kg

DRUGS (13)
  1. TYLENOL 8HR [Concomitant]
     Active Substance: ACETAMINOPHEN
     Indication: ARTHRITIS
     Dosage: 650 MG, EVERY EIGHT HOURS
     Route: 048
  2. DITROPAN [Concomitant]
     Active Substance: OXYBUTYNIN CHLORIDE
     Indication: HYPERTONIC BLADDER
     Dosage: 5 MG, 3X/DAY
     Route: 048
  3. DIPROLENE [Concomitant]
     Active Substance: BETAMETHASONE DIPROPIONATE
     Dosage: UNK UNK, 2X/DAY
     Route: 061
  4. DYDRODIURIL [Concomitant]
     Indication: HYPERTENSION
     Dosage: 12.5 MG, DAILY
     Route: 048
  5. CALCIUM 600 PLUS VITAMIN D3 [Concomitant]
     Dosage: UNK, (CALCIUM 600MG VITAMIN D3 800 IU)
  6. AROMASIN [Suspect]
     Active Substance: EXEMESTANE
     Dosage: 25 MG, ALTERNATE DAY
     Route: 048
     Dates: start: 201612
  7. CALCIUM [Concomitant]
     Active Substance: CALCIUM
     Indication: MINERAL SUPPLEMENTATION
     Dosage: 1 DF, 2X/DAY
     Route: 048
  8. CALCIUM [Concomitant]
     Active Substance: CALCIUM
     Dosage: 600 MG, UNK
  9. AROMASIN [Suspect]
     Active Substance: EXEMESTANE
     Indication: NEOPLASM MALIGNANT
     Dosage: 25 MG, DAILY (90 DAYS)
     Route: 048
     Dates: start: 2016
  10. CALCIUM 600 + D [Concomitant]
     Active Substance: CALCIUM\VITAMIN D
     Dosage: 125 MG, 2X/DAY
     Route: 048
  11. SULINDAC. [Concomitant]
     Active Substance: SULINDAC
     Indication: JOINT SWELLING
  12. SULINDAC. [Concomitant]
     Active Substance: SULINDAC
     Indication: PAIN IN EXTREMITY
     Dosage: 150 MG, EVERY 12 HOURS
     Route: 048
  13. HYDROCHLOROTHIAZIDE. [Concomitant]
     Active Substance: HYDROCHLOROTHIAZIDE
     Dosage: 12.5 MG, UNK

REACTIONS (2)
  - Pain in extremity [Unknown]
  - Intentional product misuse [Not Recovered/Not Resolved]

NARRATIVE: CASE EVENT DATE: 201612
